FAERS Safety Report 10102268 (Version 1)
Quarter: 2014Q2

REPORT INFORMATION
  Report Type: Spontaneous
  Country: US (occurrence: None)
  Receive Date: 20140423
  Receipt Date: 20140423
  Transmission Date: 20141212
  Serious: No
  Sender: FDA-Public Use
  Company Number: None

PATIENT
  Sex: Female
  Weight: 69.1 kg

DRUGS (2)
  1. FORTEO [Suspect]
     Indication: SENILE OSTEOPOROSIS
     Route: 058
     Dates: start: 20140314, end: 20140408
  2. FORTEO [Suspect]
     Indication: PATHOLOGICAL FRACTURE
     Route: 058
     Dates: start: 20140314, end: 20140408

REACTIONS (1)
  - Nausea [None]
